FAERS Safety Report 14372673 (Version 1)
Quarter: 2018Q1

REPORT INFORMATION
  Report Type: Other
  Country: US (occurrence: US)
  Receive Date: 20180110
  Receipt Date: 20180110
  Transmission Date: 20180509
  Serious: Yes (Death)
  Sender: FDA-Public Use
  Company Number: US-GENUS_LIFESCIENCES-USA-POI0580201800007

PATIENT
  Age: 53 Year
  Sex: Female

DRUGS (7)
  1. ORAL HYPOGLYCEMICS [Suspect]
     Active Substance: UNSPECIFIED INGREDIENT
     Dates: end: 2016
  2. GLIMEPIRIDE. [Suspect]
     Active Substance: GLIMEPIRIDE
     Dates: end: 2016
  3. LISINOPRIL. [Suspect]
     Active Substance: LISINOPRIL
     Dates: end: 2016
  4. ATORVASTATIN [Suspect]
     Active Substance: ATORVASTATIN
     Dates: end: 2016
  5. POTASSIUM CHLORIDE ORAL SOLUTION [Suspect]
     Active Substance: POTASSIUM CHLORIDE
     Dates: end: 2016
  6. PREGABALIN. [Suspect]
     Active Substance: PREGABALIN
     Dates: end: 2016
  7. MIRTAZAPINE. [Suspect]
     Active Substance: MIRTAZAPINE
     Dates: end: 2016

REACTIONS (1)
  - Completed suicide [Fatal]

NARRATIVE: CASE EVENT DATE: 2016
